FAERS Safety Report 22255835 (Version 2)
Quarter: 2024Q3

REPORT INFORMATION
  Report Type: Spontaneous
  Country: JP (occurrence: None)
  Receive Date: 20230426
  Receipt Date: 20240807
  Transmission Date: 20241017
  Serious: Yes (Hospitalization)
  Sender: ASTRAZENECA
  Company Number: 2023A051192

PATIENT
  Age: 65 Year
  Sex: Female

DRUGS (8)
  1. FASLODEX [Suspect]
     Active Substance: FULVESTRANT
     Indication: Inflammatory carcinoma of the breast
     Dosage: DOSE UNKNOWN
     Route: 030
     Dates: start: 202006, end: 202006
  2. FASLODEX [Suspect]
     Active Substance: FULVESTRANT
     Indication: Inflammatory carcinoma of the breast
     Dosage: DOSE UNKNOWN
     Route: 030
     Dates: start: 202009
  3. FASLODEX [Suspect]
     Active Substance: FULVESTRANT
     Indication: Inflammatory carcinoma of the breast
     Dosage: DOSE UNKNOWN
     Route: 030
     Dates: start: 202106
  4. BEVACIZUMAB [Suspect]
     Active Substance: BEVACIZUMAB
     Indication: Inflammatory carcinoma of the breast
     Dosage: DOSE UNKNOWN
     Dates: start: 202006, end: 202006
  5. BEVACIZUMAB [Suspect]
     Active Substance: BEVACIZUMAB
     Indication: Inflammatory carcinoma of the breast
     Dosage: DOSE UNKNOWN
     Dates: start: 202009
  6. PACLITAXEL [Concomitant]
     Active Substance: PACLITAXEL
     Indication: Inflammatory carcinoma of the breast
     Dosage: DOSE UNKNOWN
     Dates: start: 202006, end: 202006
  7. PACLITAXEL [Concomitant]
     Active Substance: PACLITAXEL
     Indication: Inflammatory carcinoma of the breast
     Dosage: DOSE UNKNOWN
     Route: 065
     Dates: start: 202009
  8. ERIBULIN [Concomitant]
     Active Substance: ERIBULIN
     Indication: Inflammatory carcinoma of the breast
     Dosage: DOSE UNKNOWN
     Dates: start: 202106

REACTIONS (3)
  - COVID-19 [Recovered/Resolved]
  - Protein urine present [Unknown]
  - Erythema [Not Recovered/Not Resolved]

NARRATIVE: CASE EVENT DATE: 20200807
